FAERS Safety Report 8268545-4 (Version None)
Quarter: 2012Q2

REPORT INFORMATION
  Report Type: 
  Country: None (occurrence: None)
  Receive Date: 20120409
  Receipt Date: 20120330
  Transmission Date: 20120825
  Serious: Yes (Life-Threatening, Hospitalization)
  Sender: FDA-Public Use
  Company Number: FR-GLAXOSMITHKLINE-B0792509A

PATIENT
  Sex: Male

DRUGS (7)
  1. PREVISCAN [Suspect]
     Indication: DEEP VEIN THROMBOSIS
     Dosage: 20MG PER DAY
     Route: 048
     Dates: start: 20120124, end: 20120131
  2. MIANSERINE [Concomitant]
     Route: 065
  3. ARIXTRA [Suspect]
     Indication: DEEP VEIN THROMBOSIS
     Dosage: 7.5MG SINGLE DOSE
     Route: 058
     Dates: start: 20120113, end: 20120201
  4. DIGOXIN [Concomitant]
     Route: 065
  5. MEPROBAMATE [Concomitant]
     Indication: ALCOHOLISM
     Route: 065
  6. FENOFIBRATE [Concomitant]
     Route: 065
  7. NALTREXONE HYDROCHLORIDE [Concomitant]
     Indication: ALCOHOLISM
     Route: 065

REACTIONS (5)
  - DRUG INTERACTION [None]
  - INCORRECT DRUG ADMINISTRATION DURATION [None]
  - SHOCK HAEMORRHAGIC [None]
  - ANAEMIA [None]
  - ABDOMINAL WALL HAEMATOMA [None]
